FAERS Safety Report 13776708 (Version 1)
Quarter: 2017Q3

REPORT INFORMATION
  Report Type: Spontaneous
  Country: IT (occurrence: IT)
  Receive Date: 20170721
  Receipt Date: 20170721
  Transmission Date: 20171127
  Serious: Yes (Hospitalization)
  Sender: FDA-Public Use
  Company Number: IT-PFIZER INC-2017314679

PATIENT
  Age: 26 Year
  Sex: Female

DRUGS (2)
  1. SOLU-MEDROL [Suspect]
     Active Substance: METHYLPREDNISOLONE SODIUM SUCCINATE
     Dosage: 1000 MG, MONTHLY
     Route: 042
     Dates: start: 20170330, end: 20170609
  2. TYSABRI [Interacting]
     Active Substance: NATALIZUMAB
     Indication: RELAPSING-REMITTING MULTIPLE SCLEROSIS
     Dosage: 300 MG, MONTHLY
     Route: 042
     Dates: start: 20170330, end: 20170609

REACTIONS (7)
  - Asthenia [Unknown]
  - Blood bilirubin increased [Unknown]
  - Drug interaction [Unknown]
  - Jaundice [Unknown]
  - Vomiting [Unknown]
  - Transaminases increased [Unknown]
  - Hepatitis [Unknown]

NARRATIVE: CASE EVENT DATE: 20170504
